FAERS Safety Report 10374600 (Version 1)
Quarter: 2014Q3

REPORT INFORMATION
  Report Type: Spontaneous
  Country: US (occurrence: US)
  Receive Date: 20140811
  Receipt Date: 20140811
  Transmission Date: 20150326
  Serious: Yes (Other)
  Sender: FDA-Public Use
  Company Number: US-TEVA-500621USA

PATIENT
  Sex: Female

DRUGS (1)
  1. COPAXONE [Suspect]
     Active Substance: GLATIRAMER ACETATE
     Indication: MULTIPLE SCLEROSIS
     Route: 065

REACTIONS (8)
  - Adverse event [Unknown]
  - Injection site erythema [Unknown]
  - Hyperhidrosis [Unknown]
  - Nausea [Unknown]
  - Vomiting [Unknown]
  - Dyspnoea [Unknown]
  - Abasia [Unknown]
  - Tremor [Unknown]
